FAERS Safety Report 25968187 (Version 1)
Quarter: 2025Q4

REPORT INFORMATION
  Report Type: Spontaneous
  Country: EU (occurrence: EU)
  Receive Date: 20251028
  Receipt Date: 20251028
  Transmission Date: 20260117
  Serious: Yes (Other)
  Sender: AUROBINDO
  Company Number: EU-AFSSAPS-ST2025001144

PATIENT
  Age: 38 Year
  Sex: Female
  Weight: 74 kg

DRUGS (6)
  1. OFLOXACIN [Suspect]
     Active Substance: OFLOXACIN
     Indication: Bacterial infection
     Dosage: 200 MILLIGRAM
     Route: 048
     Dates: start: 20250822, end: 20250825
  2. METHOTREXATE [Suspect]
     Active Substance: METHOTREXATE
     Indication: Bacterial infection
     Dosage: 10 MILLIGRAM, UNK
     Route: 058
     Dates: start: 20240719, end: 20250825
  3. MORPHINE SULFATE [Concomitant]
     Active Substance: MORPHINE SULFATE
     Indication: Product used for unknown indication
     Dosage: UNK
     Route: 065
  4. ACUPAN [Concomitant]
     Active Substance: NEFOPAM HYDROCHLORIDE
     Indication: Product used for unknown indication
     Dosage: UNK
     Route: 065
  5. Spasfon [Concomitant]
     Indication: Product used for unknown indication
     Dosage: UNK
     Route: 065
  6. VOGALENE [Concomitant]
     Active Substance: METOPIMAZINE
     Indication: Product used for unknown indication
     Dosage: UNK
     Route: 065

REACTIONS (1)
  - Hepatic cytolysis [Not Recovered/Not Resolved]

NARRATIVE: CASE EVENT DATE: 20250825
